FAERS Safety Report 10544920 (Version 2)
Quarter: 2015Q1

REPORT INFORMATION
  Report Type: Spontaneous
  Country: US (occurrence: None)
  Receive Date: 20141020
  Receipt Date: 20150120
  Transmission Date: 20150720
  Serious: No
  Sender: FDA-Public Use
  Company Number: AEGR000751

PATIENT
  Age: 66 Year
  Sex: Female
  Weight: 75.7 kg

DRUGS (7)
  1. COENZYME Q10 (UBIDECARENONE) [Concomitant]
  2. JUXTAPID [Suspect]
     Active Substance: LOMITAPIDE MESYLATE
     Indication: TYPE IIA HYPERLIPIDAEMIA
     Route: 048
     Dates: start: 20140910, end: 201410
  3. CRESTOR [Concomitant]
     Active Substance: ROSUVASTATIN CALCIUM
  4. JANUVIA [Concomitant]
     Active Substance: SITAGLIPTIN PHOSPHATE
  5. LISINOPRIL. [Concomitant]
     Active Substance: LISINOPRIL
  6. OMEGA 369 [Suspect]
     Active Substance: FISH OIL
     Indication: PRODUCT USED FOR UNKNOWN INDICATION
  7. ZYRTEC [Concomitant]
     Active Substance: CETIRIZINE HYDROCHLORIDE

REACTIONS (12)
  - Headache [None]
  - Weight decreased [None]
  - Blood thyroid stimulating hormone increased [None]
  - Alanine aminotransferase increased [None]
  - Vitamin D decreased [None]
  - Blood triglycerides increased [None]
  - Gastrooesophageal reflux disease [None]
  - Abdominal pain upper [None]
  - Blood cholesterol increased [None]
  - Abdominal pain lower [None]
  - Flatulence [None]
  - Gout [None]

NARRATIVE: CASE EVENT DATE: 201409
